FAERS Safety Report 20506937 (Version 1)
Quarter: 2022Q1

REPORT INFORMATION
  Report Type: Spontaneous
  Country: GB (occurrence: GB)
  Receive Date: 20220223
  Receipt Date: 20220223
  Transmission Date: 20220423
  Serious: Yes (Other)
  Sender: FDA-Public Use
  Company Number: None

PATIENT
  Age: 61 Year
  Sex: Female
  Weight: 81 kg

DRUGS (7)
  1. LEVOTHYROXINE [Suspect]
     Active Substance: LEVOTHYROXINE
     Indication: Ill-defined disorder
     Dosage: 100MCGS
     Route: 048
     Dates: start: 2007, end: 202103
  2. LEVOTHYROXINE [Suspect]
     Active Substance: LEVOTHYROXINE
     Indication: Basedow^s disease
  3. LEVOTHYROXINE [Suspect]
     Active Substance: LEVOTHYROXINE
     Indication: Endocrine ophthalmopathy
  4. LEVOTHYROXINE [Suspect]
     Active Substance: LEVOTHYROXINE
     Indication: Hypothyroidism
  5. LEVOTHYROXINE SODIUM ANHYDROUS [Suspect]
     Active Substance: LEVOTHYROXINE SODIUM ANHYDROUS
     Indication: Ill-defined disorder
     Dosage: 100 MCGS
     Route: 048
     Dates: start: 202106
  6. LEVOTHYROXINE SODIUM ANHYDROUS [Suspect]
     Active Substance: LEVOTHYROXINE SODIUM ANHYDROUS
     Indication: Hypothyroidism
  7. ACCORD-UK PROPRANOLOL [Concomitant]
     Indication: Ill-defined disorder

REACTIONS (8)
  - Fatigue [Not Recovered/Not Resolved]
  - Disturbance in attention [Not Recovered/Not Resolved]
  - Insomnia [Not Recovered/Not Resolved]
  - Apathy [Not Recovered/Not Resolved]
  - Loss of libido [Not Recovered/Not Resolved]
  - Amnesia [Not Recovered/Not Resolved]
  - Nausea [Not Recovered/Not Resolved]
  - Temperature intolerance [Not Recovered/Not Resolved]

NARRATIVE: CASE EVENT DATE: 20070101
